FAERS Safety Report 6803924-0 (Version None)
Quarter: 2010Q2

REPORT INFORMATION
  Report Type: 
  Country: None (occurrence: None)
  Receive Date: 20100628
  Receipt Date: 20060705
  Transmission Date: 20101027
  Serious: Yes (Other)
  Sender: FDA-Public Use
  Company Number: US-PFIZER INC-2006057952

PATIENT
  Sex: Female

DRUGS (2)
  1. SUTENT [Suspect]
     Indication: RENAL CANCER METASTATIC
     Dosage: FREQUENCY:  DAILY  INTERVAL:  CYCLIC
     Route: 065
     Dates: start: 20060317
  2. VALSARTAN [Concomitant]
     Route: 065

REACTIONS (1)
  - THROMBOCYTOPENIA [None]
